FAERS Safety Report 25519475 (Version 1)
Quarter: 2025Q3

REPORT INFORMATION
  Report Type: Spontaneous
  Country: US (occurrence: US)
  Receive Date: 20250704
  Receipt Date: 20250704
  Transmission Date: 20251021
  Serious: No
  Sender: SUNOVION
  Company Number: US-SMPA-2025SPA007354AA

PATIENT

DRUGS (3)
  1. GEMTESA [Suspect]
     Active Substance: VIBEGRON
     Indication: Hypertonic bladder
     Route: 048
     Dates: start: 202506
  2. GEMTESA [Suspect]
     Active Substance: VIBEGRON
     Route: 048
  3. GEMTESA [Suspect]
     Active Substance: VIBEGRON
     Route: 048

REACTIONS (9)
  - Drug intolerance [Unknown]
  - Nocturia [Not Recovered/Not Resolved]
  - Dehydration [Unknown]
  - Middle insomnia [Not Recovered/Not Resolved]
  - Weight decreased [Unknown]
  - Diarrhoea [Not Recovered/Not Resolved]
  - Constipation [Unknown]
  - Wrong technique in product usage process [Unknown]
  - Product dose omission in error [Unknown]
